FAERS Safety Report 5168146-0 (Version None)
Quarter: 2006Q4

REPORT INFORMATION
  Report Type: 
  Country: None (occurrence: None)
  Receive Date: 20061208
  Receipt Date: 20061102
  Transmission Date: 20070319
  Serious: Yes (Disabling, Other)
  Sender: FDA-Public Use
  Company Number: SE-AMGEN-UK198926

PATIENT
  Sex: Male

DRUGS (14)
  1. ARANESP [Suspect]
     Indication: RENAL FAILURE CHRONIC
     Route: 058
     Dates: start: 20051130, end: 20061031
  2. NOVORAPID [Concomitant]
     Route: 058
  3. LANTUS [Concomitant]
     Route: 058
  4. KALCIPOS [Concomitant]
     Route: 048
  5. FOLACIN [Concomitant]
     Route: 048
  6. DOXAZOSIN MESYLATE [Concomitant]
     Route: 048
  7. LASIX [Concomitant]
     Route: 048
  8. LIPITOR [Concomitant]
     Route: 048
  9. IMUREL [Concomitant]
     Route: 048
     Dates: start: 20060421
  10. NEURONTIN [Concomitant]
     Route: 048
  11. NEXIUM [Concomitant]
     Route: 048
  12. SANDIMMUNE [Concomitant]
     Route: 065
     Dates: end: 20060830
  13. CELLCEPT [Concomitant]
     Route: 065
     Dates: end: 20060413
  14. CARVEDILOL [Concomitant]
     Route: 048

REACTIONS (4)
  - APLASIA PURE RED CELL [None]
  - MYELOID MATURATION ARREST [None]
  - PLATELET COUNT DECREASED [None]
  - THERAPEUTIC RESPONSE DECREASED [None]
